FAERS Safety Report 4556405-1 (Version None)
Quarter: 2005Q1

REPORT INFORMATION
  Report Type: 
  Country: None (occurrence: None)
  Receive Date: 20050114
  Receipt Date: 20050110
  Transmission Date: 20050727
  Serious: Yes (Hospitalization)
  Sender: FDA-Public Use
  Company Number: 200410870BCA

PATIENT

DRUGS (1)
  1. CIPROFLOXACIN HCL [Suspect]
     Indication: BRONCHITIS
     Dosage: 750 MG

REACTIONS (1)
  - ATRIOVENTRICULAR BLOCK [None]
